FAERS Safety Report 14615195 (Version 3)
Quarter: 2018Q3

REPORT INFORMATION
  Report Type: Report from Study
  Country: US (occurrence: US)
  Receive Date: 20180308
  Receipt Date: 20180817
  Transmission Date: 20181010
  Serious: Yes (Hospitalization, Disabling)
  Sender: FDA-Public Use
  Company Number: US-ACTELION-A-US2018-168619

PATIENT
  Age: 24 Year
  Sex: Male
  Weight: 104.31 kg

DRUGS (4)
  1. UPTRAVI [Suspect]
     Active Substance: SELEXIPAG
     Indication: PULMONARY HYPERTENSION
     Dosage: 1600 MCG, BID
     Route: 048
  2. ADCIRCA [Concomitant]
     Active Substance: TADALAFIL
  3. LETAIRIS [Concomitant]
     Active Substance: AMBRISENTAN
  4. UPTRAVI [Suspect]
     Active Substance: SELEXIPAG
     Dosage: 1400 MCG, BID
     Route: 048

REACTIONS (7)
  - Headache [Unknown]
  - Pericardial effusion [Unknown]
  - Hypotension [Not Recovered/Not Resolved]
  - Diabetes mellitus [Unknown]
  - Trisomy 21 [Unknown]
  - Dizziness [Not Recovered/Not Resolved]
  - Pleural effusion [Unknown]
